FAERS Safety Report 10744318 (Version 2)
Quarter: 2015Q1

REPORT INFORMATION
  Report Type: Spontaneous
  Country: US (occurrence: US)
  Receive Date: 20150128
  Receipt Date: 20150129
  Transmission Date: 20150721
  Serious: No
  Sender: FDA-Public Use
  Company Number: US-PFIZER INC-2015029931

PATIENT
  Sex: Female

DRUGS (1)
  1. LYRICA [Suspect]
     Active Substance: PREGABALIN
     Indication: HERPES ZOSTER
     Dosage: UNK

REACTIONS (5)
  - Drug prescribing error [Unknown]
  - Feeling abnormal [Unknown]
  - Dizziness [Unknown]
  - Poor quality sleep [Unknown]
  - Impaired driving ability [Unknown]
